FAERS Safety Report 5077672-4 (Version None)
Quarter: 2006Q3

REPORT INFORMATION
  Report Type: 
  Country: None (occurrence: None)
  Receive Date: 20060725
  Receipt Date: 20060612
  Transmission Date: 20061208
  Serious: No
  Sender: FDA-Public Use
  Company Number: 200614107BWH

PATIENT
  Age: 48 Year
  Sex: Female

DRUGS (10)
  1. NEXAVAR [Suspect]
     Indication: LUNG NEOPLASM MALIGNANT
     Dosage: 400 MG, BID, ORAL
     Route: 048
     Dates: start: 20060610
  2. NEXAVAR [Suspect]
     Indication: METASTASIS
     Dosage: 400 MG, BID, ORAL
     Route: 048
     Dates: start: 20060610
  3. NEXAVAR [Suspect]
     Indication: RENAL CANCER METASTATIC
     Dosage: 400 MG, BID, ORAL
     Route: 048
     Dates: start: 20060610
  4. DILAUDID [Concomitant]
  5. MORPHINE SULFATE [Concomitant]
  6. VALIUM [Concomitant]
  7. REGLAN [Concomitant]
  8. VICODIN [Concomitant]
  9. PREVACID [Concomitant]
  10. RESTORIL [Concomitant]

REACTIONS (5)
  - ASTHENIA [None]
  - DYSPNOEA [None]
  - HYPOAESTHESIA [None]
  - PARAESTHESIA [None]
  - VISION BLURRED [None]
